FAERS Safety Report 8887681 (Version 2)
Quarter: 2012Q4

REPORT INFORMATION
  Report Type: 
  Country: NL (occurrence: TR)
  Receive Date: 20121106
  Receipt Date: 20121130
  Transmission Date: 20130627
  Serious: Yes (Other)
  Sender: FDA-Public Use
  Company Number: TR-SANOFI-AVENTIS-2012SA080044

PATIENT
  Age: 39 Year
  Sex: Female
  Weight: 85 kg

DRUGS (4)
  1. ARAVA [Suspect]
     Indication: RHEUMATOID ARTHRITIS
     Route: 048
     Dates: start: 201101, end: 201206
  2. DOLOREX [Concomitant]
     Indication: RHEUMATOID ARTHRITIS
     Dosage: Taken from: 10 years ago
Taken to: 1 week ago
     Route: 048
     Dates: start: 2002, end: 2012
  3. PREDNOL [Concomitant]
     Indication: RHEUMATOID ARTHRITIS
     Dosage: Taken From: 1 week ago
     Route: 048
     Dates: start: 2012
  4. DELTACORTRIL [Concomitant]
     Indication: RHEUMATOID ARTHRITIS
     Dosage: Taken from: 10 years ago
Taken to: 1 week ago
Dose: 5-20 mg
     Route: 048
     Dates: start: 2002, end: 2012

REACTIONS (2)
  - Vaginal haemorrhage [Unknown]
  - Exposure during pregnancy [Unknown]
